FAERS Safety Report 7885469-2 (Version None)
Quarter: 2011Q4

REPORT INFORMATION
  Report Type: 
  Country: None (occurrence: None)
  Receive Date: 20111102
  Receipt Date: 20110928
  Transmission Date: 20120403
  Serious: Yes (Other)
  Sender: FDA-Public Use
  Company Number: US-ROCHE-1001086

PATIENT
  Sex: Female

DRUGS (6)
  1. DOCETAXEL [Suspect]
     Indication: BREAST CANCER
     Route: 042
  2. CYCLOPHOSPHAMIDE [Suspect]
     Indication: BREAST CANCER
     Route: 042
  3. XELODA [Suspect]
     Indication: BREAST CANCER
     Route: 048
  4. XELODA [Suspect]
     Route: 048
  5. AVASTIN [Suspect]
     Indication: BREAST CANCER
     Route: 042
  6. DOXORUBICIN HCL [Suspect]
     Indication: BREAST CANCER
     Route: 042

REACTIONS (27)
  - RASH [None]
  - ABDOMINAL PAIN [None]
  - FATIGUE [None]
  - FEBRILE NEUTROPENIA [None]
  - HEADACHE [None]
  - DECREASED APPETITE [None]
  - DERMATITIS [None]
  - HAEMOGLOBIN ABNORMAL [None]
  - HYPERTENSION [None]
  - INFECTION [None]
  - MUCOSAL INFLAMMATION [None]
  - EMBOLISM [None]
  - WEIGHT DECREASED [None]
  - NAUSEA [None]
  - WHITE BLOOD CELL DISORDER [None]
  - HOT FLUSH [None]
  - DIARRHOEA [None]
  - DYSPEPSIA [None]
  - HYPOKALAEMIA [None]
  - NEUTROPHIL COUNT ABNORMAL [None]
  - LYMPHOPENIA [None]
  - THROMBOSIS [None]
  - PALMAR-PLANTAR ERYTHRODYSAESTHESIA SYNDROME [None]
  - PERIPHERAL SENSORY NEUROPATHY [None]
  - CELLULITIS [None]
  - DEHYDRATION [None]
  - MYALGIA [None]
